FAERS Safety Report 22596308 (Version 2)
Quarter: 2023Q2

REPORT INFORMATION
  Report Type: Report from Study
  Country: US (occurrence: US)
  Receive Date: 20230613
  Receipt Date: 20230623
  Transmission Date: 20230721
  Serious: No
  Sender: FDA-Public Use
  Company Number: US-002147023-NVSC2023US132877

PATIENT
  Sex: Female
  Weight: 54.43 kg

DRUGS (2)
  1. TREPROSTINIL [Suspect]
     Active Substance: TREPROSTINIL
     Indication: Pulmonary arterial hypertension
     Dosage: 10 NG/KG/MIN, CONT
     Route: 042
     Dates: start: 20230605
  2. TREPROSTINIL [Suspect]
     Active Substance: TREPROSTINIL
     Dosage: 12 NG/KG/MIN, CONT
     Route: 042

REACTIONS (3)
  - Extremity necrosis [Not Recovered/Not Resolved]
  - Dyspnoea [Unknown]
  - Hypotension [Unknown]
